FAERS Safety Report 25390028 (Version 2)
Quarter: 2025Q2

REPORT INFORMATION
  Report Type: Report from Study
  Country: US (occurrence: US)
  Receive Date: 20250603
  Receipt Date: 20250610
  Transmission Date: 20250716
  Serious: Yes (Other)
  Sender: AMGEN
  Company Number: US-AMGEN-USASP2025105543

PATIENT
  Age: 78 Year
  Sex: Female

DRUGS (12)
  1. TEPEZZA [Suspect]
     Active Substance: TEPROTUMUMAB-TRBW
     Indication: Endocrine ophthalmopathy
     Dosage: 860 MILLIGRAM, Q3WK (FIRST INFUSION) (IV 10MG/KG DOSE #1 EVERY 3 WEEKS/ PACKAGING SIZE: 500 MG)
     Route: 040
     Dates: start: 20250519
  2. TEPEZZA [Suspect]
     Active Substance: TEPROTUMUMAB-TRBW
     Indication: Toxic goitre
  3. PANTOPRAZOLE [Concomitant]
     Active Substance: PANTOPRAZOLE
  4. LEVOTHYROXINE [Concomitant]
     Active Substance: LEVOTHYROXINE
  5. METHOCARBAMOL [Concomitant]
     Active Substance: METHOCARBAMOL
  6. TRULICITY [Concomitant]
     Active Substance: DULAGLUTIDE
  7. TRAMADOL [Concomitant]
     Active Substance: TRAMADOL
  8. METOPROLOL [Concomitant]
     Active Substance: METOPROLOL
  9. INSULIN NOS [Concomitant]
     Active Substance: INSULIN NOS
  10. LASIX [Concomitant]
     Active Substance: FUROSEMIDE
  11. CALCIUM [Concomitant]
     Active Substance: CALCIUM
  12. LIPITOR [Concomitant]
     Active Substance: ATORVASTATIN CALCIUM

REACTIONS (5)
  - Feeling abnormal [Not Recovered/Not Resolved]
  - Blood glucose increased [Not Recovered/Not Resolved]
  - Diarrhoea [Not Recovered/Not Resolved]
  - Fatigue [Not Recovered/Not Resolved]
  - Nausea [Not Recovered/Not Resolved]

NARRATIVE: CASE EVENT DATE: 20250519
